FAERS Safety Report 14299983 (Version 17)
Quarter: 2021Q4

REPORT INFORMATION
  Report Type: Spontaneous
  Country: GB (occurrence: GB)
  Receive Date: 20171219
  Receipt Date: 20211224
  Transmission Date: 20220303
  Serious: Yes (Other)
  Sender: FDA-Public Use
  Company Number: GB-BAXTER-2017BAX039110

PATIENT
  Age: 73 Year
  Sex: Female
  Weight: 48 kg

DRUGS (75)
  1. SODIUM CHLORIDE [Suspect]
     Active Substance: SODIUM CHLORIDE
     Indication: Medication dilution
     Dosage: SOLUTION
     Route: 041
     Dates: start: 20171107, end: 201711
  2. SODIUM CHLORIDE [Suspect]
     Active Substance: SODIUM CHLORIDE
     Dosage: SOLUTION
     Route: 041
     Dates: start: 20171110, end: 20171114
  3. SODIUM CHLORIDE [Suspect]
     Active Substance: SODIUM CHLORIDE
     Dosage: DOSE RE-INTRODUCED.
     Route: 041
  4. SODIUM CHLORIDE [Suspect]
     Active Substance: SODIUM CHLORIDE
     Dosage: DOSE RE-INTRODUCED.
     Route: 041
  5. SODIUM CHLORIDE [Suspect]
     Active Substance: SODIUM CHLORIDE
     Dosage: 1 CYCLE
     Route: 041
     Dates: start: 20171103, end: 20171106
  6. SODIUM CHLORIDE [Suspect]
     Active Substance: SODIUM CHLORIDE
     Route: 065
     Dates: start: 20171110, end: 20171110
  7. SODIUM CHLORIDE [Suspect]
     Active Substance: SODIUM CHLORIDE
     Dosage: UNK
     Route: 041
     Dates: start: 20170806, end: 20170806
  8. SODIUM CHLORIDE [Suspect]
     Active Substance: SODIUM CHLORIDE
     Route: 065
     Dates: start: 20171103, end: 20171103
  9. SODIUM CHLORIDE [Suspect]
     Active Substance: SODIUM CHLORIDE
     Route: 065
     Dates: start: 20171110, end: 20171110
  10. SODIUM CHLORIDE [Suspect]
     Active Substance: SODIUM CHLORIDE
     Dosage: 1 CYCLE
     Route: 041
     Dates: start: 20171106, end: 20171106
  11. SODIUM CHLORIDE [Suspect]
     Active Substance: SODIUM CHLORIDE
     Route: 065
     Dates: start: 20171103, end: 20171103
  12. SODIUM CHLORIDE [Suspect]
     Active Substance: SODIUM CHLORIDE
     Route: 041
     Dates: start: 20171110, end: 20171110
  13. METOCLOPRAMIDE [Suspect]
     Active Substance: METOCLOPRAMIDE
     Indication: Product used for unknown indication
     Dosage: 10 MILLIGRAM, AS NECESSARY
     Route: 065
  14. DEXAMETHASONE [Suspect]
     Active Substance: DEXAMETHASONE
     Indication: Product used for unknown indication
     Dosage: 20 MG, QD,
     Route: 065
     Dates: start: 20171102, end: 20171106
  15. DEXAMETHASONE [Suspect]
     Active Substance: DEXAMETHASONE
     Dosage: DOSAGE FORM: UNSPECIFIED
     Route: 065
  16. ALLOPURINOL [Suspect]
     Active Substance: ALLOPURINOL
     Indication: Product used for unknown indication
     Dosage: 300 MG, QD,
     Route: 065
     Dates: start: 20171104, end: 20171120
  17. ALLOPURINOL [Suspect]
     Active Substance: ALLOPURINOL
     Route: 065
  18. ALLOPURINOL [Suspect]
     Active Substance: ALLOPURINOL
     Dosage: 300 MG, QD
     Route: 065
     Dates: start: 20171120
  19. ALLOPURINOL [Suspect]
     Active Substance: ALLOPURINOL
     Route: 065
     Dates: start: 20171104, end: 20171120
  20. ALLOPURINOL [Suspect]
     Active Substance: ALLOPURINOL
     Route: 065
     Dates: start: 20171120
  21. VELCADE [Suspect]
     Active Substance: BORTEZOMIB
     Indication: Plasma cell leukaemia
     Dosage: LYOPHILIZED POWDER, 1.8 MG, UNK
     Route: 058
     Dates: start: 20171107, end: 201711
  22. VELCADE [Suspect]
     Active Substance: BORTEZOMIB
     Dosage: LYOPHILIZED POWDER
     Route: 058
     Dates: start: 20171110, end: 20171114
  23. VELCADE [Suspect]
     Active Substance: BORTEZOMIB
     Dosage: LYOPHILIZED POWDER, DOSE RE-INTRODUCED
     Route: 058
  24. VELCADE [Suspect]
     Active Substance: BORTEZOMIB
     Dosage: LYOPHILIZED POWDER, DOSE RE-INTRODUCED
     Route: 058
  25. VELCADE [Suspect]
     Active Substance: BORTEZOMIB
     Dosage: 1.3MG/M2 EVERY CYCLE
     Route: 058
     Dates: start: 20171106, end: 20171106
  26. VELCADE [Suspect]
     Active Substance: BORTEZOMIB
     Dosage: 1.8MG UNKNOWN
     Route: 058
     Dates: start: 20171103, end: 20171103
  27. VELCADE [Suspect]
     Active Substance: BORTEZOMIB
     Dosage: 1.3MG/M2 EVERY CYCLE
     Route: 058
     Dates: start: 20171110, end: 20171110
  28. VELCADE [Suspect]
     Active Substance: BORTEZOMIB
     Route: 058
     Dates: start: 20171110, end: 20171114
  29. VELCADE [Suspect]
     Active Substance: BORTEZOMIB
     Dosage: 1.3 MG/M2, 1 CYCLE
     Route: 058
     Dates: start: 20171103, end: 20171103
  30. VELCADE [Suspect]
     Active Substance: BORTEZOMIB
     Route: 058
     Dates: start: 20171103, end: 20171103
  31. VELCADE [Suspect]
     Active Substance: BORTEZOMIB
     Route: 058
     Dates: start: 20171107, end: 201711
  32. VELCADE [Suspect]
     Active Substance: BORTEZOMIB
     Dosage: 1.3 MG/M2, 1 CYCLE
     Route: 065
     Dates: start: 20171110, end: 20171110
  33. VELCADE [Suspect]
     Active Substance: BORTEZOMIB
     Route: 058
     Dates: start: 20171106, end: 20171106
  34. VELCADE [Suspect]
     Active Substance: BORTEZOMIB
     Route: 058
     Dates: start: 20171110, end: 20171114
  35. FENTANYL [Suspect]
     Active Substance: FENTANYL
     Indication: Product used for unknown indication
     Dosage: FENTANYL PATCH, 12 UG, Q1HR
     Route: 062
     Dates: start: 20171108
  36. FENTANYL [Suspect]
     Active Substance: FENTANYL
     Dosage: UNK, EVERY 1HR
     Route: 062
     Dates: start: 20171108
  37. FENTANYL [Suspect]
     Active Substance: FENTANYL
     Route: 062
  38. MELPHALAN [Suspect]
     Active Substance: MELPHALAN
     Indication: Plasma cell leukaemia
     Dosage: 14 MG, QD,
     Route: 065
     Dates: start: 20171107, end: 20171110
  39. MELPHALAN [Suspect]
     Active Substance: MELPHALAN
     Route: 065
     Dates: start: 20171103, end: 20171103
  40. MELPHALAN [Suspect]
     Active Substance: MELPHALAN
     Dosage: DOSE RE-INTRODUCED.
     Route: 065
  41. MELPHALAN [Suspect]
     Active Substance: MELPHALAN
     Dosage: 14 MILLIGRAM, QD
     Route: 065
  42. MELPHALAN [Suspect]
     Active Substance: MELPHALAN
     Route: 065
     Dates: start: 20171103, end: 20171103
  43. MELPHALAN [Suspect]
     Active Substance: MELPHALAN
     Route: 065
     Dates: start: 201711, end: 20171107
  44. MELPHALAN [Suspect]
     Active Substance: MELPHALAN
     Route: 065
     Dates: start: 20171106, end: 20171106
  45. MELPHALAN [Suspect]
     Active Substance: MELPHALAN
     Dosage: 1 CYCLE
     Route: 065
     Dates: end: 20171110
  46. MELPHALAN [Suspect]
     Active Substance: MELPHALAN
     Route: 065
     Dates: start: 20171110, end: 20171114
  47. MELPHALAN [Suspect]
     Active Substance: MELPHALAN
     Route: 065
     Dates: start: 20171110, end: 20171110
  48. MELPHALAN [Suspect]
     Active Substance: MELPHALAN
     Route: 065
     Dates: start: 20171107
  49. MELPHALAN [Suspect]
     Active Substance: MELPHALAN
     Dosage: 1 CYCLE
     Route: 065
     Dates: start: 20171110
  50. SERTRALINE [Suspect]
     Active Substance: SERTRALINE HYDROCHLORIDE
     Indication: Product used for unknown indication
     Dosage: 50 MILLIGRAM, ONCE A DAY
     Route: 065
  51. SERTRALINE [Suspect]
     Active Substance: SERTRALINE HYDROCHLORIDE
     Route: 041
     Dates: start: 20171103, end: 20171106
  52. PREDNISONE [Suspect]
     Active Substance: PREDNISONE
     Indication: Plasma cell leukaemia
     Dosage: 70 MILLIGRAM, QD, 1 CYCLE
     Route: 065
     Dates: start: 20171103, end: 20171103
  53. PREDNISONE [Suspect]
     Active Substance: PREDNISONE
     Dosage: 70 MILLIGRAM, ONCE A DAY, UNK (1 CYCLE)
     Route: 065
     Dates: start: 20171106, end: 20171106
  54. PREDNISONE [Suspect]
     Active Substance: PREDNISONE
     Dosage: UNK (1 CYCLE)
     Route: 065
  55. PREDNISONE [Suspect]
     Active Substance: PREDNISONE
     Dosage: UNK (1 CYCLE)
     Route: 065
     Dates: start: 20171106, end: 20171106
  56. OMEPRAZOLE [Suspect]
     Active Substance: OMEPRAZOLE
     Indication: Product used for unknown indication
     Dosage: 20 MILLIGRAM, ONCE A DAY, UNSPECIFIED, EVERY MORNING
     Route: 048
  57. OMEPRAZOLE [Suspect]
     Active Substance: OMEPRAZOLE
     Dosage: 20 MILLIGRAM, ONCE A DAY, UNSPECIFIED, EVERY MORNING
     Route: 065
  58. BENDROFLUMETHIAZIDE [Suspect]
     Active Substance: BENDROFLUMETHIAZIDE
     Indication: Product used for unknown indication
     Dosage: 2.5 MILLIGRAM, ONCE A DAY,
     Route: 065
  59. BENDROFLUMETHIAZIDE [Suspect]
     Active Substance: BENDROFLUMETHIAZIDE
     Route: 065
  60. BENDROFLUMETHIAZIDE [Suspect]
     Active Substance: BENDROFLUMETHIAZIDE
     Route: 065
     Dates: start: 20171110
  61. BENDROFLUMETHIAZIDE [Suspect]
     Active Substance: BENDROFLUMETHIAZIDE
     Route: 065
     Dates: start: 20171107, end: 201711
  62. BENDROFLUMETHIAZIDE [Suspect]
     Active Substance: BENDROFLUMETHIAZIDE
     Route: 065
     Dates: start: 20171103, end: 20171103
  63. BENDROFLUMETHIAZIDE [Suspect]
     Active Substance: BENDROFLUMETHIAZIDE
     Dosage: UNK1.8 MG/M2 Q_CYCLE / 1.3 MG/M2 DAILY /1.8UNK
     Route: 065
  64. FENTANYL CITRATE [Suspect]
     Active Substance: FENTANYL CITRATE
     Indication: Product used for unknown indication
     Dosage: 12 UG
     Route: 055
     Dates: start: 20171108
  65. RAMIPRIL [Suspect]
     Active Substance: RAMIPRIL
     Indication: Product used for unknown indication
     Dosage: 10 MILLIGRAM, ONCE A DAY, DOSAGE FORM: UNSPECIFIED, EVERY MORNING
     Route: 048
  66. RAMIPRIL [Suspect]
     Active Substance: RAMIPRIL
     Dosage: 10 MILLIGRAM, ONCE A DAY, DOSAGE FORM: UNSPECIFIED, EVERY MORNING
     Route: 065
  67. FENTANYL [Suspect]
     Active Substance: FENTANYL
     Indication: Product used for unknown indication
     Dosage: DOSAGE FORM: TRANSDERMAL SYSTEM
     Route: 062
     Dates: start: 20171108
  68. DEXAMETHASONE [Concomitant]
     Active Substance: DEXAMETHASONE
     Indication: Product used for unknown indication
     Dosage: DOSAGE FORM: UNSPECIFIED, 20 MG, QD
     Route: 065
     Dates: start: 20171102, end: 20171106
  69. DEXAMETHASONE [Concomitant]
     Active Substance: DEXAMETHASONE
     Dosage: 20MG, UNK
     Route: 065
  70. ALLOPURINOL [Concomitant]
     Active Substance: ALLOPURINOL
     Indication: Product used for unknown indication
     Dosage: DOSAGE FORM: UNSPECIFIED
     Route: 065
     Dates: start: 20171104, end: 20171120
  71. BENDROFLUMETHIAZIDE [Concomitant]
     Active Substance: BENDROFLUMETHIAZIDE
     Indication: Product used for unknown indication
     Dosage: 2.5 MILLIGRAM, ONCE A DAY,
     Route: 065
  72. RAMIPRIL [Concomitant]
     Active Substance: RAMIPRIL
     Indication: Product used for unknown indication
     Dosage: 10 MILLIGRAM, ONCE A DAY, DOSAGE FORM: UNSPECIFIED, EVERY MORNING
     Route: 065
  73. SERTRALINE [Concomitant]
     Active Substance: SERTRALINE HYDROCHLORIDE
     Indication: Product used for unknown indication
     Route: 065
  74. OMEPRAZOLE [Concomitant]
     Active Substance: OMEPRAZOLE
     Indication: Product used for unknown indication
     Route: 065
  75. METOCLOPRAMIDE [Concomitant]
     Active Substance: METOCLOPRAMIDE
     Indication: Product used for unknown indication
     Route: 065

REACTIONS (20)
  - Abnormal behaviour [Not Recovered/Not Resolved]
  - Paranoia [Recovered/Resolved]
  - Agitation [Not Recovered/Not Resolved]
  - Disorientation [Recovered/Resolved]
  - Product use in unapproved indication [Unknown]
  - Disturbance in social behaviour [Recovered/Resolved]
  - Off label use [Unknown]
  - Emotional distress [Not Recovered/Not Resolved]
  - Emotional distress [Not Recovered/Not Resolved]
  - Confusional state [Recovered/Resolved]
  - Hallucination [Recovered/Resolved]
  - Abnormal behaviour [Recovered/Resolved]
  - Emotional distress [Not Recovered/Not Resolved]
  - Paranoia [Recovered/Resolved]
  - Confusional state [Recovered/Resolved]
  - Agitation [Recovered/Resolved]
  - Drug abuse [Unknown]
  - Medication error [Unknown]
  - Intentional product misuse [Unknown]
  - Abnormal behaviour [Recovered/Resolved]

NARRATIVE: CASE EVENT DATE: 20171107
